FAERS Safety Report 11895084 (Version 4)
Quarter: 2016Q1

REPORT INFORMATION
  Report Type: Report from Study
  Country: JP (occurrence: JP)
  Receive Date: 20160107
  Receipt Date: 20160304
  Transmission Date: 20160526
  Serious: Yes (Other)
  Sender: FDA-Public Use
  Company Number: PHHY2013JP107196

PATIENT
  Age: 41 Year
  Sex: Male
  Weight: 60 kg

DRUGS (41)
  1. CLOZARIL [Suspect]
     Active Substance: CLOZAPINE
     Dosage: 50 MG, QD
     Route: 048
     Dates: start: 20120225, end: 20120226
  2. CLOZARIL [Suspect]
     Active Substance: CLOZAPINE
     Dosage: 175 MG, QD
     Route: 048
     Dates: start: 20120312, end: 20120314
  3. CLOZARIL [Suspect]
     Active Substance: CLOZAPINE
     Dosage: 200 MG, QD
     Route: 048
     Dates: start: 20120315, end: 20120317
  4. CLOZARIL [Suspect]
     Active Substance: CLOZAPINE
     Dosage: 275 MG, QD
     Route: 048
     Dates: start: 20120412, end: 20120418
  5. CLOZARIL [Suspect]
     Active Substance: CLOZAPINE
     Dosage: 325 MG, QD
     Route: 048
     Dates: start: 20120426, end: 20120502
  6. CLOZARIL [Suspect]
     Active Substance: CLOZAPINE
     Dosage: 350 MG, QD
     Route: 048
     Dates: start: 20120503, end: 20120509
  7. OLANZAPINE. [Concomitant]
     Active Substance: OLANZAPINE
     Dosage: 10 MG, QD
     Route: 048
     Dates: start: 20120301, end: 20120307
  8. CLOZARIL [Suspect]
     Active Substance: CLOZAPINE
     Dosage: 75 MG, QD
     Route: 048
     Dates: start: 20120227, end: 20120229
  9. CLOZARIL [Suspect]
     Active Substance: CLOZAPINE
     Dosage: 300 MG, QD
     Route: 048
     Dates: start: 20120419, end: 20120425
  10. CLOZARIL [Suspect]
     Active Substance: CLOZAPINE
     Dosage: 400 MG, QD
     Route: 048
     Dates: start: 20120517
  11. FERROUS SULFATE [Concomitant]
     Active Substance: FERROUS SULFATE\FERROUS SULFATE, DRIED
     Indication: PRODUCT USED FOR UNKNOWN INDICATION
     Dosage: 105 MG, QD
     Route: 048
     Dates: start: 20120126, end: 20120417
  12. VALPROATE NA [Concomitant]
     Active Substance: VALPROATE SODIUM
     Indication: PRODUCT USED FOR UNKNOWN INDICATION
     Dosage: 600 MG, QD
     Route: 048
     Dates: start: 20130223
  13. CLOZARIL [Suspect]
     Active Substance: CLOZAPINE
     Dosage: 100 MG, QD
     Route: 048
     Dates: start: 20120301, end: 20120304
  14. OLANZAPINE. [Concomitant]
     Active Substance: OLANZAPINE
     Dosage: 15 MG, QD
     Route: 048
     Dates: start: 20120227, end: 20120228
  15. OLANZAPINE. [Concomitant]
     Active Substance: OLANZAPINE
     Dosage: 5 MG, QD
     Route: 048
     Dates: start: 20120308, end: 20120311
  16. YOKUKANSAN [Concomitant]
     Active Substance: HERBALS
     Indication: PROPHYLAXIS
     Dosage: 3 DF, QD
     Route: 048
     Dates: start: 20130223
  17. OLANZAPINE. [Concomitant]
     Active Substance: OLANZAPINE
     Indication: SCHIZOPHRENIA
     Dosage: 20 MG, QD
     Route: 048
     Dates: start: 20120222, end: 20120226
  18. RISPERIDONE. [Concomitant]
     Active Substance: RISPERIDONE
     Indication: SCHIZOPHRENIA
     Dosage: 4 MG, QD
     Route: 048
     Dates: start: 20120221, end: 20120314
  19. LITHIUM CARBONATE. [Concomitant]
     Active Substance: LITHIUM CARBONATE
     Indication: SCHIZOPHRENIA
     Dosage: 600 MG, QD
     Route: 048
     Dates: start: 20080627
  20. PANTETHINE [Concomitant]
     Active Substance: PANTETHINE
     Dosage: 600 MG, QD
     Route: 048
     Dates: start: 20130223
  21. PRANLUKAST [Concomitant]
     Active Substance: PRANLUKAST
     Indication: SCHIZOPHRENIA
     Dosage: 450 MG, QD
     Route: 048
     Dates: start: 20130227
  22. CLOZARIL [Suspect]
     Active Substance: CLOZAPINE
     Dosage: 250 MG, QD
     Route: 048
     Dates: start: 20120322, end: 20120411
  23. CARBAMAZEPINE. [Suspect]
     Active Substance: CARBAMAZEPINE
     Dosage: 200 MG, QD
     Route: 048
     Dates: start: 20120405, end: 20120411
  24. RISPERIDONE. [Concomitant]
     Active Substance: RISPERIDONE
     Dosage: 3 MG, QD
     Route: 048
     Dates: start: 20120315, end: 20120317
  25. RISPERIDONE. [Concomitant]
     Active Substance: RISPERIDONE
     Dosage: 2 MG, QD
     Route: 048
     Dates: start: 20120318, end: 20120321
  26. DAIKENCHUTO [Concomitant]
     Active Substance: HERBALS
     Indication: PRODUCT USED FOR UNKNOWN INDICATION
     Dosage: 3 DF, QD
     Route: 048
     Dates: start: 20111105
  27. CLOZARIL [Suspect]
     Active Substance: CLOZAPINE
     Indication: SCHIZOPHRENIA
     Dosage: 12.5 MG, QD
     Route: 048
     Dates: start: 20120222, end: 20120222
  28. CLOZARIL [Suspect]
     Active Substance: CLOZAPINE
     Dosage: 25 MG, QD
     Route: 048
     Dates: start: 20120223, end: 20120224
  29. CLOZARIL [Suspect]
     Active Substance: CLOZAPINE
     Dosage: 125 MG, QD
     Route: 048
     Dates: start: 20120305, end: 20120307
  30. CLOZARIL [Suspect]
     Active Substance: CLOZAPINE
     Dosage: 225 MG, QD
     Route: 048
     Dates: start: 20120318, end: 20130321
  31. SODIUM VALPROATE [Concomitant]
     Active Substance: VALPROATE SODIUM
     Indication: PRODUCT USED FOR UNKNOWN INDICATION
     Dosage: 600 MG, QD
     Route: 048
     Dates: start: 20120407
  32. QUAZEPAM. [Concomitant]
     Active Substance: QUAZEPAM
     Indication: SCHIZOPHRENIA
     Dosage: 15 MG, QD
     Route: 048
     Dates: end: 20120328
  33. PANTETHINE [Concomitant]
     Active Substance: PANTETHINE
     Indication: PRODUCT USED FOR UNKNOWN INDICATION
     Dosage: 600 MG, QD
     Route: 048
     Dates: end: 20120411
  34. PANTETHINE [Concomitant]
     Active Substance: PANTETHINE
     Dosage: 960 MG, QD
     Route: 048
     Dates: start: 20120412
  35. BETHANECHOL CHLORIDE. [Concomitant]
     Active Substance: BETHANECHOL CHLORIDE
     Indication: PROPHYLAXIS
     Dosage: 150 MG, QD
     Route: 048
     Dates: start: 20120412
  36. CLOZARIL [Suspect]
     Active Substance: CLOZAPINE
     Dosage: 150 MG, QD
     Route: 048
     Dates: start: 20120308, end: 20120311
  37. CLOZARIL [Suspect]
     Active Substance: CLOZAPINE
     Dosage: 375 MG, QD
     Route: 048
     Dates: start: 20120510, end: 20120516
  38. CARBAMAZEPINE. [Suspect]
     Active Substance: CARBAMAZEPINE
     Indication: GENERALISED TONIC-CLONIC SEIZURE
     Dosage: 600 MG, QD
     Route: 048
     Dates: start: 20070308, end: 20120327
  39. CARBAMAZEPINE. [Suspect]
     Active Substance: CARBAMAZEPINE
     Dosage: 400 MG, QD
     Route: 048
     Dates: start: 20120328, end: 20120404
  40. LITHIUM CARBONATE. [Concomitant]
     Active Substance: LITHIUM CARBONATE
     Dosage: 600 MG, QD
     Route: 048
     Dates: start: 20130223
  41. GAMMA ORYZANOL [Concomitant]
     Active Substance: GAMMA ORYZANOL
     Indication: PROPHYLAXIS
     Dosage: 150 MG, QD
     Route: 048
     Dates: start: 20130223

REACTIONS (18)
  - Platelet count decreased [Recovered/Resolved]
  - White blood cell count increased [Recovered/Resolved]
  - White blood cell count increased [Recovered/Resolved]
  - White blood cell count increased [Recovered/Resolved]
  - White blood cell count increased [Recovered/Resolved]
  - Constipation [Not Recovered/Not Resolved]
  - Nausea [Recovering/Resolving]
  - Generalised tonic-clonic seizure [Recovered/Resolved]
  - Red blood cell count decreased [Recovered/Resolved]
  - Heart rate increased [Recovered/Resolved]
  - Red blood cell count decreased [Recovered/Resolved]
  - White blood cell count increased [Recovered/Resolved]
  - Heart rate increased [Recovered/Resolved]
  - Salivary hypersecretion [Recovering/Resolving]
  - Red blood cell count decreased [Recovered/Resolved]
  - Red blood cell count decreased [Unknown]
  - Haemoglobin decreased [Unknown]
  - Vomiting [Recovering/Resolving]

NARRATIVE: CASE EVENT DATE: 20120308
